FAERS Safety Report 10241576 (Version 2)
Quarter: 2014Q3

REPORT INFORMATION
  Report Type: Spontaneous
  Country: CH (occurrence: CH)
  Receive Date: 20140617
  Receipt Date: 20140827
  Transmission Date: 20150326
  Serious: Yes (Life-Threatening, Other)
  Sender: FDA-Public Use
  Company Number: CH-JNJFOC-20140602255

PATIENT

DRUGS (2)
  1. RISPERIDONE. [Suspect]
     Active Substance: RISPERIDONE
     Indication: ACCIDENTAL EXPOSURE TO PRODUCT
     Route: 048
  2. RISPERIDONE. [Suspect]
     Active Substance: RISPERIDONE
     Indication: ACCIDENTAL EXPOSURE TO PRODUCT
     Route: 048

REACTIONS (14)
  - Abdominal pain [Unknown]
  - Somnolence [Unknown]
  - Overdose [Unknown]
  - Bradycardia [Unknown]
  - Tachycardia [Unknown]
  - Vomiting [Unknown]
  - Toxicity to various agents [Unknown]
  - Disturbance in attention [Unknown]
  - Disorientation [Unknown]
  - Accidental exposure to product by child [Unknown]
  - Depressed level of consciousness [Unknown]
  - Ataxia [Unknown]
  - Miosis [Unknown]
  - Headache [Unknown]
